FAERS Safety Report 7570277-2 (Version None)
Quarter: 2011Q2

REPORT INFORMATION
  Report Type: 
  Country: None (occurrence: None)
  Receive Date: 20110622
  Receipt Date: 20110622
  Transmission Date: 20111010
  Serious: No
  Sender: FDA-Public Use
  Company Number: None

PATIENT
  Sex: Female

DRUGS (1)
  1. PREDNISONE TAB [Suspect]
     Indication: ORGAN TRANSPLANT
     Dosage: 5MG QOD PO
     Route: 048
     Dates: start: 20100201

REACTIONS (1)
  - HOT FLUSH [None]
